FAERS Safety Report 18780360 (Version 4)
Quarter: 2021Q1

REPORT INFORMATION
  Report Type: Report from Study
  Country: CN (occurrence: CN)
  Receive Date: 20210125
  Receipt Date: 20210304
  Transmission Date: 20210419
  Serious: Yes (Hospitalization)
  Sender: FDA-Public Use
  Company Number: NVSC2021CN014971

PATIENT
  Age: 60 Year
  Sex: Female

DRUGS (1)
  1. ZYKADIA [Suspect]
     Active Substance: CERITINIB
     Indication: NON-SMALL CELL LUNG CANCER
     Dosage: 450 MG, QD (450MG/D)
     Route: 048
     Dates: start: 20190614

REACTIONS (6)
  - Infection [Recovered/Resolved]
  - Pyrexia [Recovered/Resolved]
  - Bacterial infection [Recovered/Resolved]
  - Lung hypoinflation [Recovered/Resolved]
  - Pleural effusion [Recovered/Resolved]
  - Inflammation [Recovered/Resolved]

NARRATIVE: CASE EVENT DATE: 20201226
